FAERS Safety Report 9908408 (Version 1)
Quarter: 2014Q1

REPORT INFORMATION
  Report Type: Spontaneous
  Country: US (occurrence: None)
  Receive Date: 20140214
  Receipt Date: 20140214
  Transmission Date: 20141002
  Serious: Yes (Hospitalization)
  Sender: FDA-Public Use
  Company Number: None

PATIENT
  Age: 75 Year
  Sex: Male
  Weight: 77 kg

DRUGS (4)
  1. PLAVIX [Suspect]
     Indication: CORONARY ENDARTERECTOMY
     Dosage: RECENT
     Route: 048
  2. PLAVIX [Suspect]
     Indication: TRANSIENT ISCHAEMIC ATTACK
     Dosage: RECENT
     Route: 048
  3. ASPIRIN [Suspect]
     Indication: CORONARY ENDARTERECTOMY
     Dosage: RECENT
     Route: 048
  4. ASPIRIN [Suspect]
     Indication: TRANSIENT ISCHAEMIC ATTACK
     Dosage: RECENT
     Route: 048

REACTIONS (2)
  - Haemorrhagic anaemia [None]
  - Duodenal ulcer haemorrhage [None]
